FAERS Safety Report 20557372 (Version 1)
Quarter: 2022Q1

REPORT INFORMATION
  Report Type: Report from Study
  Country: JP (occurrence: JP)
  Receive Date: 20220307
  Receipt Date: 20220307
  Transmission Date: 20220423
  Serious: Yes (Hospitalization, Other)
  Sender: FDA-Public Use
  Company Number: JP-Vifor Pharma-VIT-2021-10255

PATIENT
  Age: 75 Year
  Sex: Female
  Weight: 55 kg

DRUGS (28)
  1. VELPHORO [Suspect]
     Active Substance: SUCROFERRIC OXYHYDROXIDE
     Indication: Hyperphosphataemia
     Route: 048
     Dates: start: 20161004, end: 20180412
  2. VELPHORO [Suspect]
     Active Substance: SUCROFERRIC OXYHYDROXIDE
     Indication: Chronic kidney disease
  3. EPOETIN ALFA BS [Concomitant]
     Active Substance: ERYTHROPOIETIN
     Indication: Nephrogenic anaemia
     Dates: start: 20160608, end: 20161221
  4. EPOETIN ALFA BS [Concomitant]
     Active Substance: ERYTHROPOIETIN
     Dates: start: 20161222, end: 20170105
  5. EPOETIN ALFA BS [Concomitant]
     Active Substance: ERYTHROPOIETIN
     Dates: start: 20170107, end: 20170118
  6. EPOETIN ALFA BS [Concomitant]
     Active Substance: ERYTHROPOIETIN
     Dates: start: 20170119, end: 20170201
  7. EPOETIN ALFA BS [Concomitant]
     Active Substance: ERYTHROPOIETIN
     Dates: start: 20170202, end: 20170314
  8. EPOETIN ALFA BS [Concomitant]
     Active Substance: ERYTHROPOIETIN
     Dates: start: 20170316, end: 20170328
  9. EPOETIN ALFA BS [Concomitant]
     Active Substance: ERYTHROPOIETIN
     Dates: start: 20170401, end: 20170620
  10. EPOETIN ALFA BS [Concomitant]
     Active Substance: ERYTHROPOIETIN
     Dates: start: 20170624, end: 20170718
  11. EPOETIN ALFA BS [Concomitant]
     Active Substance: ERYTHROPOIETIN
     Dates: start: 20170722, end: 20170727
  12. EPOETIN ALFA BS [Concomitant]
     Active Substance: ERYTHROPOIETIN
     Dates: start: 20170808, end: 20170829
  13. EPOETIN ALFA BS [Concomitant]
     Active Substance: ERYTHROPOIETIN
     Dates: start: 20170902, end: 20170912
  14. EPOETIN ALFA BS [Concomitant]
     Active Substance: ERYTHROPOIETIN
     Dates: start: 20170914, end: 20171010
  15. EPOETIN ALFA BS [Concomitant]
     Active Substance: ERYTHROPOIETIN
     Dates: start: 20171014, end: 20180105
  16. EPOETIN ALFA BS [Concomitant]
     Active Substance: ERYTHROPOIETIN
     Dates: start: 20180106, end: 20180119
  17. EPOETIN ALFA BS [Concomitant]
     Active Substance: ERYTHROPOIETIN
     Dates: start: 20180120, end: 20180131
  18. EPOETIN ALFA BS [Concomitant]
     Active Substance: ERYTHROPOIETIN
     Dates: start: 20180201, end: 20180411
  19. EPOETIN ALFA BS [Concomitant]
     Active Substance: ERYTHROPOIETIN
     Dates: start: 20180424
  20. CRESTOR [Concomitant]
     Active Substance: ROSUVASTATIN CALCIUM
     Indication: Dyslipidaemia
     Route: 048
  21. NEXIUM [Concomitant]
     Active Substance: ESOMEPRAZOLE MAGNESIUM
     Indication: Gastrooesophageal reflux disease
     Route: 048
  22. AZOSEMIDE [Concomitant]
     Active Substance: AZOSEMIDE
     Indication: Hypertension
     Route: 048
  23. ADALAT CC [Concomitant]
     Active Substance: NIFEDIPINE
     Indication: Hypertension
     Route: 048
  24. OLMESARTAN MEDOXOMIL [Concomitant]
     Active Substance: OLMESARTAN MEDOXOMIL
     Indication: Hypertension
     Route: 048
  25. TENELIGLIPTIN [Concomitant]
     Active Substance: TENELIGLIPTIN
     Route: 048
     Dates: start: 20170325
  26. CINACALCET HYDROCHLORIDE [Concomitant]
     Active Substance: CINACALCET HYDROCHLORIDE
     Route: 048
     Dates: start: 20180118
  27. DIGOXIN [Concomitant]
     Active Substance: DIGOXIN
     Indication: Atrial fibrillation
     Route: 048
     Dates: start: 20180205
  28. CALTAN [Concomitant]
     Active Substance: CALCIUM CARBONATE
     Indication: Hyperphosphataemia
     Dates: end: 20161003

REACTIONS (4)
  - Acute myocardial infarction [Recovering/Resolving]
  - Discomfort [Recovering/Resolving]
  - Respiratory failure [Recovering/Resolving]
  - Acute pulmonary oedema [Recovering/Resolving]

NARRATIVE: CASE EVENT DATE: 20180410
